FAERS Safety Report 12649114 (Version 2)
Quarter: 2016Q3

REPORT INFORMATION
  Report Type: Spontaneous
  Country: US (occurrence: US)
  Receive Date: 20160812
  Receipt Date: 20160908
  Transmission Date: 20161109
  Serious: Yes (Hospitalization, Disabling, Other)
  Sender: FDA-Public Use
  Company Number: US-SAOL THERAPEUTICS-2016SAO00367

PATIENT
  Age: 47 Year
  Sex: Female

DRUGS (15)
  1. REMERON [Suspect]
     Active Substance: MIRTAZAPINE
     Dosage: UNK
  2. LEXAPRO [Suspect]
     Active Substance: ESCITALOPRAM OXALATE
  3. BACLOFEN. [Suspect]
     Active Substance: BACLOFEN
     Indication: PAIN
     Dosage: 70 ?G, \DAY
     Route: 037
  4. COMPOUNDED BACLOFEN [Suspect]
     Active Substance: BACLOFEN
     Dosage: 70 ?G, \DAY
     Dates: end: 20150603
  5. BACLOFEN. [Suspect]
     Active Substance: BACLOFEN
     Dosage: UNK MG, UNK
  6. FENTANYL. [Suspect]
     Active Substance: FENTANYL
     Dosage: 630 ?G, \DAY
     Route: 037
     Dates: end: 20150603
  7. DILAUDID [Suspect]
     Active Substance: HYDROMORPHONE HYDROCHLORIDE
     Dosage: 3.78 MG, \DAY
     Route: 037
     Dates: end: 20150603
  8. TIZANIDINE. [Suspect]
     Active Substance: TIZANIDINE
     Dosage: UNK
  9. SYNTHROID [Suspect]
     Active Substance: LEVOTHYROXINE SODIUM
  10. BUPIVACAINE. [Suspect]
     Active Substance: BUPIVACAINE
     Dosage: 7.6 MG, \DAY
     Route: 037
     Dates: end: 20150603
  11. PERCOCET [Concomitant]
     Active Substance: ACETAMINOPHEN\OXYCODONE HYDROCHLORIDE
     Dosage: 40 MG, \DAY
     Route: 048
  12. ADDERALL [Suspect]
     Active Substance: AMPHETAMINE ASPARTATE\AMPHETAMINE SULFATE\DEXTROAMPHETAMINE SACCHARATE\DEXTROAMPHETAMINE SULFATE
  13. TOPAMAX [Suspect]
     Active Substance: TOPIRAMATE
  14. MIDRIN [Suspect]
     Active Substance: ACETAMINOPHEN\DICHLORALPHENAZONE\ISOMETHEPTENE
  15. DIAZEPAM. [Concomitant]
     Active Substance: DIAZEPAM
     Dosage: 20 MG, \DAY
     Route: 048

REACTIONS (37)
  - Chest pain [Not Recovered/Not Resolved]
  - Loss of consciousness [Not Recovered/Not Resolved]
  - Muscle spasms [Not Recovered/Not Resolved]
  - Off label use [Unknown]
  - Headache [Not Recovered/Not Resolved]
  - Pain [Unknown]
  - Fatigue [Not Recovered/Not Resolved]
  - Muscular weakness [Not Recovered/Not Resolved]
  - Nasopharyngitis [Not Recovered/Not Resolved]
  - Overdose [Unknown]
  - Chest discomfort [Not Recovered/Not Resolved]
  - Disturbance in attention [Unknown]
  - Dry skin [Unknown]
  - Post lumbar puncture syndrome [Recovered/Resolved]
  - Heart rate increased [Not Recovered/Not Resolved]
  - Cognitive disorder [Not Recovered/Not Resolved]
  - General physical condition abnormal [Not Recovered/Not Resolved]
  - Hyperhidrosis [Unknown]
  - Pruritus [Unknown]
  - Alopecia [Unknown]
  - Malaise [Unknown]
  - Bedridden [Unknown]
  - Road traffic accident [Unknown]
  - Cardiac disorder [Not Recovered/Not Resolved]
  - Dyspnoea [Not Recovered/Not Resolved]
  - Muscle spasticity [Not Recovered/Not Resolved]
  - Fall [Unknown]
  - Chills [Unknown]
  - Nightmare [Unknown]
  - Drug withdrawal syndrome [Unknown]
  - Catheter site swelling [Unknown]
  - Toxicity to various agents [Unknown]
  - Paraesthesia [Not Recovered/Not Resolved]
  - Influenza [Not Recovered/Not Resolved]
  - Performance status decreased [Not Recovered/Not Resolved]
  - Tremor [Unknown]
  - Vomiting [Unknown]

NARRATIVE: CASE EVENT DATE: 2014
